FAERS Safety Report 7221802 (Version 9)
Quarter: 2012Q4

REPORT INFORMATION
  Report Type: 
  Country: CA (occurrence: CA)
  Receive Date: 20091217
  Receipt Date: 20121031
  Transmission Date: 20130627
  Serious: Yes (Death, Hospitalization, Other)
  Sender: FDA-Public Use
  Company Number: PHMT2006CA01785

PATIENT
  Age: 74 Year
  Sex: Female

DRUGS (9)
  1. SANDOSTATIN LAR [Suspect]
     Indication: CARCINOID TUMOUR
     Dosage: 20 mg every four weeks
     Route: 030
     Dates: start: 20060516
  2. SANDOSTATIN LAR [Suspect]
     Dosage: 30 mg Q 4weeks
  3. SANDOSTATIN LAR [Suspect]
     Dosage: 20 mg every 4 weeks
     Route: 030
     Dates: start: 20070407
  4. SANDOSTATIN LAR [Suspect]
     Dosage: 30 mg every 4 weeks
     Route: 030
  5. SANDOSTATIN LAR [Suspect]
     Dosage: 30 mg, QMO
     Route: 030
  6. SANDOSTATIN LAR [Suspect]
     Dosage: 30 mg every 4 weeks
     Dates: start: 20100730
  7. POTASSIUM [Concomitant]
  8. CHEMOTHERAPEUTICS NOS [Concomitant]
  9. BLOOD TRANSFUSION [Concomitant]

REACTIONS (9)
  - Death [Fatal]
  - Pneumonia [Unknown]
  - Oedema peripheral [Unknown]
  - Intestinal obstruction [Recovering/Resolving]
  - Hepatic cancer [Unknown]
  - Malignant neoplasm progression [Not Recovered/Not Resolved]
  - Fatigue [Unknown]
  - Vomiting [Unknown]
  - Flatulence [Unknown]
